FAERS Safety Report 10227034 (Version 1)
Quarter: 2014Q2

REPORT INFORMATION
  Report Type: Report from Study
  Country: GB (occurrence: None)
  Receive Date: 20140528
  Receipt Date: 20140528
  Transmission Date: 20141212
  Serious: Yes (Death)
  Sender: FDA-Public Use
  Company Number: BTG00127

PATIENT
  Age: 65 Year
  Sex: Male

DRUGS (2)
  1. DIGIFAB (DIGOXIN IMMUNE FAB (OVINE)) [Suspect]
     Indication: TOXICITY TO VARIOUS AGENTS
     Dates: start: 20140507
  2. DIGOXIN (DIGOXIN) [Suspect]
     Indication: PRODUCT USED FOR UNKNOWN INDICATION

REACTIONS (1)
  - Death [None]
